FAERS Safety Report 4560075-6 (Version None)
Quarter: 2005Q1

REPORT INFORMATION
  Report Type: 
  Country: None (occurrence: None)
  Receive Date: 20050124
  Receipt Date: 20050113
  Transmission Date: 20050727
  Serious: Yes (Other)
  Sender: FDA-Public Use
  Company Number: 2005012810

PATIENT
  Age: 62 Year
  Sex: Female
  Weight: 61.2356 kg

DRUGS (3)
  1. VISINE TEARS ( GLYCERIN, POLYETHYLENE GLYCOL, HYDROXYPROPYLMETHYLCELLU [Suspect]
     Indication: OCULAR HYPERAEMIA
     Dosage: 4-6 TIMES DAILY, OPHTHALMIC
     Route: 047
     Dates: start: 20040701, end: 20041201
  2. VITAMINS (VITAMIINS) [Concomitant]
  3. CALCIUM (CALCIUM) [Concomitant]

REACTIONS (3)
  - DRUG INEFFECTIVE [None]
  - EYELID OPERATION [None]
  - INFECTION [None]
